FAERS Safety Report 9504213 (Version 1)
Quarter: 2013Q3

REPORT INFORMATION
  Report Type: Spontaneous
  Country: US (occurrence: US)
  Receive Date: 20130906
  Receipt Date: 20130906
  Transmission Date: 20140515
  Serious: Yes (Hospitalization)
  Sender: FDA-Public Use
  Company Number: US-GLAXOSMITHKLINE-A1040128A

PATIENT
  Sex: Male

DRUGS (1)
  1. PAXIL CR [Suspect]
     Indication: ANXIETY
     Route: 064
     Dates: start: 2004

REACTIONS (4)
  - Hypoplastic left heart syndrome [Unknown]
  - Cardiac operation [Unknown]
  - Cerebrovascular accident [Unknown]
  - Foetal exposure during pregnancy [Unknown]
